FAERS Safety Report 17751844 (Version 1)
Quarter: 2020Q2

REPORT INFORMATION
  Report Type: Spontaneous
  Country: NL (occurrence: NL)
  Receive Date: 20200506
  Receipt Date: 20200506
  Transmission Date: 20200714
  Serious: Yes (Other)
  Sender: FDA-Public Use
  Company Number: NL-PFIZER INC-2020136870

PATIENT
  Age: 56 Year
  Sex: Female
  Weight: 77.3 kg

DRUGS (6)
  1. METHYLPREDNISOLONE ACETATE. [Suspect]
     Active Substance: METHYLPREDNISOLONE ACETATE
     Indication: ENDOCRINE OPHTHALMOPATHY
     Dosage: 1 DF, WEEKLY (1X PER WEEK)
     Dates: start: 20200224, end: 20200316
  2. ANASTROZOLE. [Concomitant]
     Active Substance: ANASTROZOLE
     Dosage: UNK
  3. EUTHYROX [Concomitant]
     Active Substance: LEVOTHYROXINE SODIUM
     Dosage: UNK
  4. ALENDRONIC ACID/CALCIUM CARBONATE [Concomitant]
     Dosage: UNK
  5. STRUMAZOL [Concomitant]
     Active Substance: METHIMAZOLE
     Dosage: UNK
  6. PROTAGENS [Concomitant]
     Dosage: UNK

REACTIONS (2)
  - Transaminases increased [Recovered/Resolved]
  - Hepatitis E [Recovering/Resolving]

NARRATIVE: CASE EVENT DATE: 20200309
